FAERS Safety Report 12199328 (Version 3)
Quarter: 2016Q2

REPORT INFORMATION
  Report Type: Report from Study
  Country: US (occurrence: US)
  Receive Date: 20160322
  Receipt Date: 20160531
  Transmission Date: 20160815
  Serious: Yes (Hospitalization, Other)
  Sender: FDA-Public Use
  Company Number: US-BAYER-2016-040790

PATIENT
  Age: 64 Year
  Sex: Male
  Weight: 65.76 kg

DRUGS (6)
  1. ADEMPAS [Suspect]
     Active Substance: RIOCIGUAT
     Indication: PULMONARY HYPERTENSION
     Dosage: UNK
     Dates: start: 20140123
  2. ADEMPAS [Suspect]
     Active Substance: RIOCIGUAT
     Indication: PULMONARY HYPERTENSION
     Dosage: 1 MG, TID
     Route: 048
  3. ADEMPAS [Suspect]
     Active Substance: RIOCIGUAT
     Indication: PULMONARY HYPERTENSION
     Dosage: 1.5 MG, TID
     Route: 048
  4. OXYGEN. [Concomitant]
     Active Substance: OXYGEN
     Dosage: 2 L, PRN
  5. XARELTO [Concomitant]
     Active Substance: RIVAROXABAN
  6. ADEMPAS [Suspect]
     Active Substance: RIOCIGUAT
     Indication: PULMONARY HYPERTENSION
     Dosage: 2.5 MG, TID
     Route: 048

REACTIONS (10)
  - Thrombosis [Unknown]
  - Weight decreased [Unknown]
  - Sepsis [Unknown]
  - Drug dose omission [Unknown]
  - Klebsiella infection [Unknown]
  - Deep vein thrombosis [Unknown]
  - Adverse event [Unknown]
  - Asthenia [Unknown]
  - Muscular weakness [Unknown]
  - Drug withdrawal convulsions [Unknown]
